APPROVED DRUG PRODUCT: PREDNISOLONE
Active Ingredient: PREDNISOLONE
Strength: 15MG/5ML
Dosage Form/Route: SOLUTION;ORAL
Application: A219509 | Product #001 | TE Code: AA
Applicant: TP ANDA HOLDINGS LLC
Approved: Jun 23, 2025 | RLD: No | RS: No | Type: RX